FAERS Safety Report 8145665-6 (Version None)
Quarter: 2012Q1

REPORT INFORMATION
  Report Type: 
  Country: None (occurrence: None)
  Receive Date: 20120217
  Receipt Date: 20120210
  Transmission Date: 20120608
  Serious: Yes (Other)
  Sender: FDA-Public Use
  Company Number: US-BAYER-2012-014204

PATIENT
  Sex: Male

DRUGS (1)
  1. BRONKAID MIST [Suspect]
     Indication: ASTHMA
     Route: 048

REACTIONS (4)
  - DIABETES MELLITUS [None]
  - SHOCK [None]
  - DIABETIC COMPLICATION [None]
  - DEPRESSED LEVEL OF CONSCIOUSNESS [None]
